FAERS Safety Report 14362321 (Version 1)
Quarter: 2018Q1

REPORT INFORMATION
  Report Type: Spontaneous
  Country: US (occurrence: US)
  Receive Date: 20180108
  Receipt Date: 20180108
  Transmission Date: 20180509
  Serious: Yes (Other)
  Sender: FDA-Public Use
  Company Number: US-TEVA-2018-US-844058

PATIENT
  Sex: Female

DRUGS (2)
  1. MYORISAN [Suspect]
     Active Substance: ISOTRETINOIN
     Dates: start: 20171122, end: 201712
  2. CLARAVIS [Suspect]
     Active Substance: ISOTRETINOIN
     Dates: start: 20170915, end: 201712

REACTIONS (1)
  - Loss of consciousness [Unknown]

NARRATIVE: CASE EVENT DATE: 2017
